FAERS Safety Report 26109314 (Version 1)
Quarter: 2025Q4

REPORT INFORMATION
  Report Type: Spontaneous
  Country: US (occurrence: US)
  Receive Date: 20251201
  Receipt Date: 20251201
  Transmission Date: 20260117
  Serious: No
  Sender: SANOFI AVENTIS
  Company Number: US-SA-2025SA357905

PATIENT
  Age: 54 Year
  Sex: Female
  Weight: 70.45 kg

DRUGS (16)
  1. DUPIXENT [Suspect]
     Active Substance: DUPILUMAB
     Indication: Nasal polyps
     Dosage: 300 MG, QOW
     Route: 058
  2. GAMUNEX [Suspect]
     Active Substance: HUMAN IMMUNOGLOBULIN G
  3. EPINEPHRINE [Concomitant]
     Active Substance: EPINEPHRINE
  4. LIDOCAINE [Concomitant]
     Active Substance: LIDOCAINE
  5. DIPHENHYDRAMINE HYDROCHLORIDE [Concomitant]
     Active Substance: DIPHENHYDRAMINE HYDROCHLORIDE
  6. ACETAMINOPHEN [Concomitant]
     Active Substance: ACETAMINOPHEN
  7. EMGALITY [Concomitant]
     Active Substance: GALCANEZUMAB-GNLM
  8. METHYLFOLATE PLUS [Concomitant]
  9. VILAZODONE HYDROCHLORIDE [Concomitant]
     Active Substance: VILAZODONE HYDROCHLORIDE
  10. PROGESTERONE [Concomitant]
     Active Substance: PROGESTERONE
  11. ESOMEPRAZOLE MAGNESIUM [Concomitant]
     Active Substance: ESOMEPRAZOLE MAGNESIUM
  12. DOTTI [Concomitant]
     Active Substance: ESTRADIOL
  13. TRAZODONE HCL [Concomitant]
     Active Substance: TRAZODONE HYDROCHLORIDE
  14. RIZATRIPTAN [Concomitant]
     Active Substance: RIZATRIPTAN
  15. EPIPEN [Concomitant]
     Active Substance: EPINEPHRINE
  16. ATORVASTATIN CALCIUM [Concomitant]
     Active Substance: ATORVASTATIN CALCIUM

REACTIONS (5)
  - Infusion site erythema [Not Recovered/Not Resolved]
  - Infusion site inflammation [Not Recovered/Not Resolved]
  - Infusion site pruritus [Not Recovered/Not Resolved]
  - Injection site erythema [Unknown]
  - Injection site erythema [Unknown]

NARRATIVE: CASE EVENT DATE: 20251123
